FAERS Safety Report 17268970 (Version 1)
Quarter: 2020Q1

REPORT INFORMATION
  Report Type: Spontaneous
  Country: US (occurrence: US)
  Receive Date: 20200114
  Receipt Date: 20200114
  Transmission Date: 20200409
  Serious: Yes (Death, Hospitalization)
  Sender: FDA-Public Use
  Company Number: US-BAYER-2020-003271

PATIENT
  Age: 26 Year
  Sex: Male

DRUGS (2)
  1. PARACETAMOL+DEXTROMETHORPHAN+DOXYLAMINE [Suspect]
     Active Substance: ACETAMINOPHEN\DEXTROMETHORPHAN HYDROBROMIDE\DOXYLAMINE SUCCINATE
     Dosage: UNK
     Route: 048
  2. ISOPHANE INSULIN [Suspect]
     Active Substance: INSULIN NOS

REACTIONS (2)
  - Product administration error [Fatal]
  - Toxicity to various agents [Fatal]
